FAERS Safety Report 24324874 (Version 1)
Quarter: 2024Q3

REPORT INFORMATION
  Report Type: Spontaneous
  Country: US (occurrence: US)
  Receive Date: 20240916
  Receipt Date: 20240916
  Transmission Date: 20241017
  Serious: No
  Sender: SANOFI AVENTIS
  Company Number: US-SA-2024SA265680

PATIENT
  Age: 66 Year
  Sex: Female

DRUGS (2)
  1. DUPIXENT [Suspect]
     Active Substance: DUPILUMAB
     Indication: Dermatitis atopic
     Dosage: 300 MG, QOW
     Route: 058
  2. DUPIXENT [Suspect]
     Active Substance: DUPILUMAB
     Indication: Asthma
     Dosage: UNK UNK, Q3W
     Route: 058

REACTIONS (7)
  - Hyperglycaemia [Unknown]
  - Migraine [Unknown]
  - Snapping hip syndrome [Unknown]
  - Depressed mood [Unknown]
  - Vision blurred [Unknown]
  - Injection site pain [Recovered/Resolved]
  - Injection site swelling [Recovered/Resolved]
